FAERS Safety Report 6209455-3 (Version None)
Quarter: 2009Q2

REPORT INFORMATION
  Report Type: 
  Country: None (occurrence: None)
  Receive Date: 20090601
  Receipt Date: 20090522
  Transmission Date: 20091009
  Serious: Yes (Other)
  Sender: FDA-Public Use
  Company Number: US-ROCHE-634569

PATIENT
  Age: 46 Year
  Sex: Male

DRUGS (4)
  1. VALCYTE [Suspect]
     Route: 048
     Dates: start: 20090201
  2. COMBIVIR [Concomitant]
  3. ETRAVIRINE [Concomitant]
  4. ISENTRESS [Concomitant]

REACTIONS (1)
  - T-LYMPHOCYTE COUNT DECREASED [None]
